FAERS Safety Report 4395488-9 (Version None)
Quarter: 2004Q3

REPORT INFORMATION
  Report Type: 
  Country: None (occurrence: None)
  Receive Date: 20040708
  Receipt Date: 20040625
  Transmission Date: 20050211
  Serious: Yes (Death)
  Sender: FDA-Public Use
  Company Number: 04H-163-0264859-00

PATIENT
  Age: 2 Week
  Sex: Female

DRUGS (1)
  1. HEPARIN SODIUM [Suspect]
     Indication: ANTICOAGULANT THERAPY

REACTIONS (7)
  - CARDIAC ARREST [None]
  - HAEMODYNAMIC INSTABILITY [None]
  - HEPARIN-INDUCED THROMBOCYTOPENIA [None]
  - HYPOXIA [None]
  - POST PROCEDURAL COMPLICATION [None]
  - SHUNT THROMBOSIS [None]
  - THROMBOSIS [None]
